FAERS Safety Report 6905457-X (Version None)
Quarter: 2010Q3

REPORT INFORMATION
  Report Type: 
  Country: None (occurrence: None)
  Receive Date: 20100804
  Receipt Date: 20100723
  Transmission Date: 20110219
  Serious: Yes (Hospitalization)
  Sender: FDA-Public Use
  Company Number: PHHY2010CA48714

PATIENT
  Sex: Female

DRUGS (2)
  1. ZOLEDRONIC ACID (RECLAST) [Suspect]
     Indication: OSTEOPOROSIS
     Dosage: UNK
     Dates: start: 20080101
  2. ZOLEDRONIC ACID (RECLAST) [Suspect]
     Dosage: UNK
     Dates: start: 20090716

REACTIONS (4)
  - BONE DENSITY DECREASED [None]
  - DRUG INEFFECTIVE [None]
  - PNEUMONIA [None]
  - UNDERWEIGHT [None]
